FAERS Safety Report 9354289 (Version 1)
Quarter: 2013Q2

REPORT INFORMATION
  Report Type: Spontaneous
  Country: US (occurrence: US)
  Receive Date: 20130618
  Receipt Date: 20130618
  Transmission Date: 20140414
  Serious: No
  Sender: FDA-Public Use
  Company Number: US-COVIDIEN/TYCO HEALTHCARE/MALLINCKRODT-T201302799

PATIENT
  Age: 84 Year
  Sex: Female

DRUGS (3)
  1. ULTRATAG RBC [Suspect]
     Indication: IMAGING PROCEDURE
     Dosage: UNK
     Dates: start: 20130603, end: 20130603
  2. ULTRA-TECHNEKOW DTE GENERATOR [Concomitant]
     Dosage: 34.1 MCI
  3. HEPARIN [Concomitant]
     Dosage: 300 UNITS OF 1000 UNIT/ML

REACTIONS (1)
  - Drug ineffective [Unknown]
